FAERS Safety Report 23560308 (Version 1)
Quarter: 2024Q1

REPORT INFORMATION
  Report Type: Spontaneous
  Country: US (occurrence: US)
  Receive Date: 20240223
  Receipt Date: 20240223
  Transmission Date: 20240409
  Serious: No
  Sender: FDA-Public Use
  Company Number: US-TARO PHARMACEUTICALS USA INC.-2023TAR01359

PATIENT

DRUGS (1)
  1. MINOXIDIL [Suspect]
     Active Substance: MINOXIDIL
     Indication: Alopecia
     Dosage: UNK, JUST SPRAY SOME IN ?MY HAND?, ONCE DAILY, HAS USED IT TWICE IT DAILY IN THE PAST, SCALP
     Route: 061

REACTIONS (3)
  - Back pain [Recovered/Resolved]
  - Product substitution issue [Unknown]
  - Inappropriate schedule of product administration [Unknown]
